FAERS Safety Report 22716448 (Version 3)
Quarter: 2024Q2

REPORT INFORMATION
  Report Type: Spontaneous
  Country: US (occurrence: US)
  Receive Date: 20230718
  Receipt Date: 20240424
  Transmission Date: 20240715
  Serious: Yes (Other)
  Sender: FDA-Public Use
  Company Number: US-BAYER-2023A095612

PATIENT
  Age: 37 Year
  Sex: Female
  Weight: 76.644 kg

DRUGS (1)
  1. MIRENA [Suspect]
     Active Substance: LEVONORGESTREL
     Indication: Contraception
     Dosage: 20?G/DAY
     Route: 015
     Dates: start: 20230606

REACTIONS (4)
  - Pregnancy with contraceptive device [Recovered/Resolved]
  - Contraindicated device used [None]
  - Medical device monitoring error [Not Recovered/Not Resolved]
  - Device dislocation [None]

NARRATIVE: CASE EVENT DATE: 20230606
